FAERS Safety Report 7546766-3 (Version None)
Quarter: 2011Q2

REPORT INFORMATION
  Report Type: 
  Country: None (occurrence: None)
  Receive Date: 20110614
  Receipt Date: 20110606
  Transmission Date: 20111010
  Serious: Yes (Other)
  Sender: FDA-Public Use
  Company Number: B0726072A

PATIENT
  Sex: Female
  Weight: 75 kg

DRUGS (1)
  1. MALARONE [Suspect]
     Indication: PRODUCT USED FOR UNKNOWN INDICATION
     Route: 048

REACTIONS (6)
  - HALLUCINATION, AUDITORY [None]
  - FALL [None]
  - PRURITUS [None]
  - DAYDREAMING [None]
  - RASH [None]
  - DIZZINESS [None]
